FAERS Safety Report 15832748 (Version 1)
Quarter: 2019Q1

REPORT INFORMATION
  Report Type: Report from Study
  Country: ZA (occurrence: ZA)
  Receive Date: 20190116
  Receipt Date: 20190116
  Transmission Date: 20190417
  Serious: Yes (Death)
  Sender: FDA-Public Use
  Company Number: ZA-MYLANLABS-2019M1003076

PATIENT

DRUGS (7)
  1. ISONIAZID. [Suspect]
     Active Substance: ISONIAZID
     Indication: TUBERCULOSIS
     Dosage: DAILY ADMINISTRATION FOR 2 MONTHS, FOLLOWED BY ADMINISTRATION FOR ANOTHER 4 MONTHS.
     Route: 065
  2. PYRAZINAMIDE. [Suspect]
     Active Substance: PYRAZINAMIDE
     Indication: TUBERCULOSIS
     Dosage: DAILY ADMINISTRATION FOR 2 MONTHS
     Route: 065
  3. PREDNISONE. [Concomitant]
     Active Substance: PREDNISONE
     Indication: IMMUNE RECONSTITUTION INFLAMMATORY SYNDROME
     Dosage: 40 MG/DAY FOR 14 DAYS, FOLLOWED BY 20 MG/DAY FOR 14 DAYS
     Route: 065
  4. RIFAMPICIN [Suspect]
     Active Substance: RIFAMPIN
     Indication: TUBERCULOSIS
     Dosage: DAILY ADMINISTRATION FOR 2 MONTHS, FOLLOWED BY ADMINISTRATION FOR ANOTHER 4 MONTHS.
     Route: 065
  5. ETHAMBUTOL [Suspect]
     Active Substance: ETHAMBUTOL HYDROCHLORIDE
     Indication: TUBERCULOSIS
     Dosage: DAILY ADMINISTRATION FOR 2 MONTHS
     Route: 065
  6. TENOFOVIR [Suspect]
     Active Substance: TENOFOVIR
     Indication: HIV INFECTION
     Route: 065
  7. EFAVIRENZ. [Suspect]
     Active Substance: EFAVIRENZ
     Indication: HIV INFECTION
     Route: 065

REACTIONS (5)
  - Sepsis [Fatal]
  - Protein-losing gastroenteropathy [Fatal]
  - Immune reconstitution inflammatory syndrome associated tuberculosis [Fatal]
  - Tuberculosis gastrointestinal [Fatal]
  - Paradoxical drug reaction [Fatal]
